FAERS Safety Report 13206257 (Version 1)
Quarter: 2017Q1

REPORT INFORMATION
  Report Type: Spontaneous
  Country: US (occurrence: US)
  Receive Date: 20170209
  Receipt Date: 20170209
  Transmission Date: 20170428
  Serious: No
  Sender: FDA-Public Use
  Company Number: US-SA-2017SA012919

PATIENT
  Age: 64 Year
  Sex: Male

DRUGS (3)
  1. METOPROLOL. [Concomitant]
     Active Substance: METOPROLOL
     Dosage: TAB 50 MG ER
  2. PRALUENT [Suspect]
     Active Substance: ALIROCUMAB
     Route: 058
     Dates: start: 20161202
  3. ALIROCUMAB PREFILLED SYRINGE [Concomitant]
     Dates: start: 20161202

REACTIONS (1)
  - Back pain [Not Recovered/Not Resolved]
